FAERS Safety Report 6446446-1 (Version None)
Quarter: 2009Q4

REPORT INFORMATION
  Report Type: 
  Country: None (occurrence: None)
  Receive Date: 20091119
  Receipt Date: 20091110
  Transmission Date: 20100525
  Serious: Yes (Other)
  Sender: FDA-Public Use
  Company Number: PHEH2008US08271

PATIENT
  Sex: Female

DRUGS (1)
  1. ZELNORM [Suspect]
     Indication: IRRITABLE BOWEL SYNDROME
     Dosage: UNK
     Dates: start: 20030101, end: 20050101

REACTIONS (8)
  - ABDOMINAL DISTENSION [None]
  - BREAST CANCER [None]
  - CYST [None]
  - DYSARTHRIA [None]
  - NODULE [None]
  - PALPITATIONS [None]
  - STOMACH MASS [None]
  - WEIGHT INCREASED [None]
